FAERS Safety Report 9624841 (Version 4)
Quarter: 2014Q1

REPORT INFORMATION
  Report Type: Spontaneous
  Country: CA (occurrence: CA)
  Receive Date: 20131015
  Receipt Date: 20140131
  Transmission Date: 20141002
  Serious: Yes (Other)
  Sender: FDA-Public Use
  Company Number: CA-AMGEN-CANSP2013051993

PATIENT
  Age: 54 Year
  Sex: Female
  Weight: 90 kg

DRUGS (10)
  1. ENBREL [Suspect]
     Indication: ANKYLOSING SPONDYLITIS
     Dosage: 50 MG, UNK
     Route: 065
     Dates: start: 20120727
  2. METFORMIN [Concomitant]
     Dosage: UNK
  3. INSULIN [Concomitant]
     Dosage: 10 UNIT, UNK
  4. DIOVAN [Concomitant]
     Dosage: UNK
  5. DIAMICRON [Concomitant]
     Dosage: UNK
  6. SULFASALAZINE [Concomitant]
     Dosage: 2.5 G, QD
  7. PREDNISONE [Concomitant]
     Dosage: UNK
  8. CELEBREX [Concomitant]
     Dosage: UNK
  9. EFFEXOR [Concomitant]
     Dosage: UNK
  10. GLICLAZIDE [Concomitant]
     Dosage: UNK

REACTIONS (4)
  - Pneumonitis [Recovered/Resolved]
  - Tracheal obstruction [Recovered/Resolved]
  - Malaise [Not Recovered/Not Resolved]
  - Lower respiratory tract infection [Not Recovered/Not Resolved]
